FAERS Safety Report 8780508 (Version 1)
Quarter: 2012Q4

REPORT INFORMATION
  Report Type: Spontaneous
  Country: US (occurrence: None)
  Receive Date: 20120829
  Receipt Date: 20120829
  Transmission Date: 20130627
  Serious: Yes (Hospitalization)
  Sender: FDA-Public Use
  Company Number: 1388194

PATIENT
  Age: 70 Year
  Sex: Female

DRUGS (2)
  1. METHOTREXATE [Suspect]
     Indication: PRIMARY CENTRAL NERVOUS SYSTEM LYMPHOMA
     Dosage: g/m^2
     Route: 042
  2. RITUXIMAB [Concomitant]

REACTIONS (6)
  - Yersinia test positive [None]
  - Pancytopenia [None]
  - Hypokalaemia [None]
  - Proctocolitis [None]
  - Candida test positive [None]
  - Colonic pseudo-obstruction [None]
